FAERS Safety Report 15644579 (Version 1)
Quarter: 2018Q4

REPORT INFORMATION
  Report Type: Spontaneous
  Country: US (occurrence: US)
  Receive Date: 20181121
  Receipt Date: 20181121
  Transmission Date: 20190205
  Serious: Yes (Death, Hospitalization)
  Sender: FDA-Public Use
  Company Number: None

PATIENT
  Age: 83 Year
  Sex: Female

DRUGS (16)
  1. CEFAZOLIN [Concomitant]
     Active Substance: CEFAZOLIN
  2. DOXYCYCL HYC [Concomitant]
  3. AMIODARONE [Concomitant]
     Active Substance: AMIODARONE
  4. MUPIROCIN. [Concomitant]
     Active Substance: MUPIROCIN
  5. FLUDROCORT [Concomitant]
  6. IMATINIB. [Suspect]
     Active Substance: IMATINIB MESYLATE
     Indication: CHRONIC MYELOID LEUKAEMIA
     Route: 048
     Dates: start: 20170509
  7. NITROFURANTIN [Concomitant]
     Active Substance: NITROFURANTOIN
  8. CEPHALEXIN. [Concomitant]
     Active Substance: CEPHALEXIN
  9. IBUPROFEN. [Concomitant]
     Active Substance: IBUPROFEN
  10. LEVOTHYROXIN [Concomitant]
     Active Substance: LEVOTHYROXINE
  11. MUCUS RELIEF [Concomitant]
     Active Substance: GUAIFENESIN
  12. TRAMADOL. [Concomitant]
     Active Substance: TRAMADOL
  13. CEFDINIR. [Concomitant]
     Active Substance: CEFDINIR
  14. CALC ACETATE [Concomitant]
     Active Substance: CALCIUM ACETATE
  15. PANTOPRAZOLE [Concomitant]
     Active Substance: PANTOPRAZOLE
  16. MIDODRINE [Concomitant]
     Active Substance: MIDODRINE

REACTIONS (1)
  - Death [None]

NARRATIVE: CASE EVENT DATE: 20181107
